FAERS Safety Report 18340942 (Version 2)
Quarter: 2020Q4

REPORT INFORMATION
  Report Type: Spontaneous
  Country: US (occurrence: US)
  Receive Date: 20201003
  Receipt Date: 20201112
  Transmission Date: 20210113
  Serious: Yes (Other)
  Sender: FDA-Public Use
  Company Number: US-DRREDDYS-USA/USA/20/0127209

PATIENT
  Age: 11 Year
  Sex: Male
  Weight: 51.75 kg

DRUGS (4)
  1. ZIPRASIDONE. [Suspect]
     Active Substance: ZIPRASIDONE
     Indication: DEPRESSION
     Route: 048
     Dates: start: 202006
  2. GUAIFENESIN. [Concomitant]
     Active Substance: GUAIFENESIN
     Indication: PRODUCT USED FOR UNKNOWN INDICATION
     Route: 065
  3. DAYTRANA [Concomitant]
     Active Substance: METHYLPHENIDATE
     Indication: PRODUCT USED FOR UNKNOWN INDICATION
     Route: 062
  4. ZIPRASIDONE. [Suspect]
     Active Substance: ZIPRASIDONE
     Indication: ANXIETY
     Route: 048
     Dates: start: 20200920

REACTIONS (4)
  - Trismus [Unknown]
  - Dysarthria [Unknown]
  - Facial paralysis [Unknown]
  - Neuralgia [Unknown]

NARRATIVE: CASE EVENT DATE: 202008
